FAERS Safety Report 20420744 (Version 2)
Quarter: 2022Q1

REPORT INFORMATION
  Report Type: Spontaneous
  Country: US (occurrence: US)
  Receive Date: 20220203
  Receipt Date: 20220210
  Transmission Date: 20220423
  Serious: No
  Sender: FDA-Public Use
  Company Number: US-BAYER-2022A018018

PATIENT
  Age: 40 Year
  Sex: Female

DRUGS (1)
  1. ESTRADIOL HEMIHYDRATE [Suspect]
     Active Substance: ESTRADIOL HEMIHYDRATE
     Dosage: UNK
     Route: 062
     Dates: start: 202112

REACTIONS (2)
  - Device adhesion issue [None]
  - Product dose omission issue [None]

NARRATIVE: CASE EVENT DATE: 20220101
